FAERS Safety Report 9171496 (Version 1)
Quarter: 2013Q1

REPORT INFORMATION
  Report Type: Spontaneous
  Country: US (occurrence: US)
  Receive Date: 20130319
  Receipt Date: 20130319
  Transmission Date: 20140127
  Serious: Yes (Hospitalization, Other)
  Sender: FDA-Public Use
  Company Number: US-ACTAVIS-EU-(XML)-2013-03847

PATIENT
  Age: 64 Year
  Sex: Male

DRUGS (2)
  1. HYDROCHLOROTHIAZIDE [Suspect]
     Indication: HYPERTENSION
     Dosage: 12.5 MG, DAILY
     Route: 065
  2. TUMS [Interacting]
     Indication: GASTROOESOPHAGEAL REFLUX DISEASE
     Dosage: FROM 5-6 TABLETS TO 20-30 TABLETS PER DAY
     Route: 048

REACTIONS (2)
  - Milk-alkali syndrome [Recovered/Resolved]
  - Potentiating drug interaction [Recovered/Resolved]
